FAERS Safety Report 4563791-5 (Version None)
Quarter: 2005Q1

REPORT INFORMATION
  Report Type: 
  Country: None (occurrence: None)
  Receive Date: 20050121
  Receipt Date: 20041122
  Transmission Date: 20050727
  Serious: Yes (Disabling)
  Sender: FDA-Public Use
  Company Number: 2004097063

PATIENT
  Age: 43 Year
  Sex: Female
  Weight: 56.6996 kg

DRUGS (2)
  1. CELEBREX [Suspect]
     Indication: ARTHRALGIA
     Dosage: 200 MG (200 MG, 1 IN 1 D), ORAL
     Route: 048
     Dates: start: 20041004, end: 20041022
  2. CELEBREX [Suspect]
     Indication: EPICONDYLITIS
     Dosage: 200 MG (200 MG, 1 IN 1 D), ORAL
     Route: 048
     Dates: start: 20041004, end: 20041022

REACTIONS (16)
  - ANTINUCLEAR ANTIBODY POSITIVE [None]
  - ANXIETY [None]
  - ARTHRALGIA [None]
  - BLOOD URINE PRESENT [None]
  - BURNING SENSATION [None]
  - CHEST PAIN [None]
  - DYSPNOEA [None]
  - DYSURIA [None]
  - HYPERHIDROSIS [None]
  - INFLUENZA LIKE ILLNESS [None]
  - INSOMNIA [None]
  - MUSCLE SPASMS [None]
  - MUSCULAR WEAKNESS [None]
  - NAUSEA [None]
  - PAIN [None]
  - PARAESTHESIA [None]
